FAERS Safety Report 21228051 (Version 1)
Quarter: 2022Q3

REPORT INFORMATION
  Report Type: Spontaneous
  Country: JP (occurrence: JP)
  Receive Date: 20220818
  Receipt Date: 20220818
  Transmission Date: 20221026
  Serious: Yes (Hospitalization)
  Sender: FDA-Public Use
  Company Number: JP-MYLANLABS-2022M1086721

PATIENT
  Age: 10 Month
  Sex: Male

DRUGS (11)
  1. TACROLIMUS [Suspect]
     Active Substance: TACROLIMUS
     Indication: Juvenile chronic myelomonocytic leukaemia
     Route: 065
  2. PREDNISOLONE [Suspect]
     Active Substance: PREDNISOLONE
     Indication: Juvenile chronic myelomonocytic leukaemia
     Route: 065
  3. BUSULFAN [Suspect]
     Active Substance: BUSULFAN
     Indication: Juvenile chronic myelomonocytic leukaemia
     Route: 065
  4. FLUDARABINE [Suspect]
     Active Substance: FLUDARABINE PHOSPHATE
     Indication: Juvenile chronic myelomonocytic leukaemia
     Route: 065
  5. MELPHALAN [Suspect]
     Active Substance: MELPHALAN
     Indication: Juvenile chronic myelomonocytic leukaemia
     Route: 065
  6. MERCAPTOPURINE [Suspect]
     Active Substance: MERCAPTOPURINE
     Indication: Juvenile chronic myelomonocytic leukaemia
     Route: 065
  7. GANCICLOVIR [Concomitant]
     Active Substance: GANCICLOVIR
     Indication: Pneumonia cytomegaloviral
     Route: 065
  8. SILDENAFIL [Concomitant]
     Active Substance: SILDENAFIL
     Indication: Pulmonary hypertension
     Route: 065
  9. AMLODIPINE [Concomitant]
     Active Substance: AMLODIPINE BESYLATE
     Indication: Hypertension
     Route: 065
  10. BISOPROLOL FUMARATE [Concomitant]
     Active Substance: BISOPROLOL FUMARATE
     Indication: Hypertension
     Route: 065
  11. AZACITIDINE [Concomitant]
     Active Substance: AZACITIDINE
     Indication: Juvenile chronic myelomonocytic leukaemia
     Route: 065

REACTIONS (3)
  - Hyperammonaemia [Recovered/Resolved]
  - Respiratory alkalosis [Recovered/Resolved]
  - Off label use [Unknown]
